FAERS Safety Report 9214036 (Version 1)
Quarter: 2013Q2

REPORT INFORMATION
  Report Type: Spontaneous
  Country: US (occurrence: None)
  Receive Date: 20130404
  Receipt Date: 20130404
  Transmission Date: 20140414
  Serious: No
  Sender: FDA-Public Use
  Company Number: None

PATIENT
  Sex: Female

DRUGS (1)
  1. INTRON-A (INTERFERON ALFA-2B) [Suspect]
     Dosage: 15 MU  TIW  SQ
     Route: 058
     Dates: start: 20120806

REACTIONS (7)
  - Vertigo [None]
  - Rash [None]
  - Alopecia [None]
  - Nausea [None]
  - Disturbance in attention [None]
  - Memory impairment [None]
  - Arthritis [None]
